FAERS Safety Report 21615589 (Version 1)
Quarter: 2022Q4

REPORT INFORMATION
  Report Type: Report from Study
  Country: CN (occurrence: CN)
  Receive Date: 20221118
  Receipt Date: 20221118
  Transmission Date: 20230113
  Serious: Yes (Hospitalization)
  Sender: FDA-Public Use
  Company Number: CN-002147023-NVSC2022CN137848

PATIENT
  Age: 65 Year
  Sex: Female
  Weight: 51 kg

DRUGS (5)
  1. INCLISIRAN [Suspect]
     Active Substance: INCLISIRAN
     Indication: Arteriosclerosis
     Dosage: UNK
     Route: 058
     Dates: start: 20210517
  2. ATORVASTATIN [Concomitant]
     Active Substance: ATORVASTATIN
     Indication: Arteriosclerosis
     Dosage: UNK
     Route: 065
     Dates: start: 20210408
  3. IRBESARTAN [Concomitant]
     Active Substance: IRBESARTAN
     Indication: Hypertension
     Dosage: UNK
     Route: 065
     Dates: start: 20220213
  4. ASPIRIN [Concomitant]
     Active Substance: ASPIRIN
     Indication: Arteriosclerosis
     Dosage: UNK
     Route: 065
     Dates: start: 20190108, end: 20220213
  5. TELMISARTAN [Concomitant]
     Active Substance: TELMISARTAN
     Indication: Hypertension
     Dosage: UNK
     Route: 065
     Dates: start: 20210620, end: 20220213

REACTIONS (1)
  - Cerebral infarction [Recovered/Resolved]

NARRATIVE: CASE EVENT DATE: 20220213
